FAERS Safety Report 8402171-9 (Version None)
Quarter: 2012Q2

REPORT INFORMATION
  Report Type: 
  Country: None (occurrence: None)
  Receive Date: 20120525
  Receipt Date: 20120515
  Transmission Date: 20120825
  Serious: Yes (Other)
  Sender: FDA-Public Use
  Company Number: 2012SP025724

PATIENT
  Age: 67 Year
  Sex: Female

DRUGS (1)
  1. SYCREST (ASENAPINE /05706901/) (5 MG) [Suspect]
     Indication: BIPOLAR DISORDER
     Dosage: 5 MG, SL
     Route: 060
     Dates: start: 20120416, end: 20120417

REACTIONS (7)
  - HEADACHE [None]
  - DISORIENTATION [None]
  - VOMITING [None]
  - ANXIETY [None]
  - NAUSEA [None]
  - DIZZINESS [None]
  - ABDOMINAL PAIN [None]
